FAERS Safety Report 6283781-4 (Version None)
Quarter: 2009Q3

REPORT INFORMATION
  Report Type: 
  Country: None (occurrence: None)
  Receive Date: 20090724
  Receipt Date: 20070328
  Transmission Date: 20100115
  Serious: Yes (Other)
  Sender: FDA-Public Use
  Company Number: US-ASTRAZENECA-2006UW11743

PATIENT
  Age: 10744 Day
  Sex: Female
  Weight: 102.1 kg

DRUGS (21)
  1. SEROQUEL [Suspect]
     Indication: BIPOLAR DISORDER
     Route: 048
     Dates: start: 20010701, end: 20020101
  2. SEROQUEL [Suspect]
     Indication: DEPRESSION
     Route: 048
     Dates: start: 20010701, end: 20020101
  3. SEROQUEL [Suspect]
     Route: 048
     Dates: start: 20020115
  4. SEROQUEL [Suspect]
     Route: 048
     Dates: start: 20020115
  5. ZYPREXA [Suspect]
     Dates: start: 20010612
  6. ABILIFY [Concomitant]
     Dosage: 5-20 MG
     Dates: start: 20030101
  7. NAVANE [Concomitant]
     Dates: start: 20020501, end: 20020501
  8. RISPERDAL [Concomitant]
     Dosage: ONE DAY
     Dates: start: 20010101
  9. PROTONIX [Concomitant]
     Dates: start: 20041111
  10. PREVACID [Concomitant]
     Dates: start: 20020524
  11. DEPAKOTE [Concomitant]
     Indication: MAJOR DEPRESSION
     Dates: start: 20030902
  12. EFFEXOR XR [Concomitant]
     Indication: MAJOR DEPRESSION
     Dates: start: 20030902
  13. LEVBID [Concomitant]
     Indication: DIARRHOEA
     Dates: start: 20030902
  14. REGLAN [Concomitant]
     Dates: start: 20030902
  15. ALDACTONE [Concomitant]
     Dates: start: 20010612
  16. GLUCOPHAGE [Concomitant]
     Dates: start: 20010612
  17. PEPCID [Concomitant]
     Dates: start: 20041111
  18. ZELNORM [Concomitant]
     Dates: start: 20041111
  19. HUMULIN 70/30 [Concomitant]
     Dosage: 60 UNIT, BID
     Dates: start: 20070123
  20. SYNTHROID [Concomitant]
     Dates: start: 20070329
  21. BYETTA [Concomitant]
     Dates: start: 20061023

REACTIONS (11)
  - CHOLECYSTITIS [None]
  - CHOLELITHIASIS [None]
  - DIABETES MELLITUS [None]
  - DIABETES MELLITUS INADEQUATE CONTROL [None]
  - DIABETIC GASTROPARESIS [None]
  - DIARRHOEA [None]
  - GALLBLADDER OPERATION [None]
  - HYPOTHYROIDISM [None]
  - ILL-DEFINED DISORDER [None]
  - THYROID OPERATION [None]
  - TYPE 1 DIABETES MELLITUS [None]
